FAERS Safety Report 9528993 (Version 1)
Quarter: 2013Q3

REPORT INFORMATION
  Report Type: Spontaneous
  Country: US (occurrence: US)
  Receive Date: 20130917
  Receipt Date: 20130917
  Transmission Date: 20140515
  Serious: No
  Sender: FDA-Public Use
  Company Number: US-PFIZER INC-2013264473

PATIENT
  Sex: Female

DRUGS (2)
  1. LEVOXYL [Suspect]
     Dosage: UNK
     Dates: end: 200005
  2. SYNTHROID [Suspect]
     Dosage: UNK
     Dates: start: 201305

REACTIONS (2)
  - Nausea [Unknown]
  - Malaise [Unknown]
